FAERS Safety Report 8893387 (Version 1)
Quarter: 2012Q4

REPORT INFORMATION
  Report Type: 
  Country: LB (occurrence: LB)
  Receive Date: 20121108
  Receipt Date: 20121108
  Transmission Date: 20130627
  Serious: Yes (Hospitalization)
  Sender: FDA-Public Use
  Company Number: LB-SANOFI-AVENTIS-2012SA081341

PATIENT
  Age: 40 Year
  Sex: Male

DRUGS (4)
  1. LANTUS [Suspect]
     Indication: TYPE 2 DIABETES MELLITUS
     Dosage: 25-30units/day
     Route: 058
     Dates: start: 2011, end: 20121101
  2. TRITACE [Suspect]
     Indication: HYPERTENSION
     Route: 048
     Dates: start: 201210
  3. INSULIN [Concomitant]
     Indication: TYPE 2 DIABETES MELLITUS
     Dosage: Dose:5 unit(s)
     Route: 058
     Dates: start: 2011, end: 20121101
  4. FENOFIBRATE [Concomitant]
     Route: 048

REACTIONS (3)
  - Renal failure [Recovering/Resolving]
  - Blood creatinine increased [Recovering/Resolving]
  - Hyperkalaemia [Recovering/Resolving]
